FAERS Safety Report 22084452 (Version 1)
Quarter: 2023Q1

REPORT INFORMATION
  Report Type: Spontaneous
  Country: US (occurrence: None)
  Receive Date: 20230309
  Receipt Date: 20230309
  Transmission Date: 20230417
  Serious: Yes (Other)
  Sender: FDA-Public Use
  Company Number: None

PATIENT
  Age: 32 Year
  Sex: Male
  Weight: 67.5 kg

DRUGS (1)
  1. EMGALITY [Suspect]
     Active Substance: GALCANEZUMAB-GNLM
     Indication: Migraine
     Dosage: OTHER QUANTITY : 2 INJECTION(S);?OTHER FREQUENCY : LOADING DOSE ONLY;?
     Route: 058
     Dates: start: 20210616, end: 20210616

REACTIONS (7)
  - Abdominal pain [None]
  - Asthma [None]
  - Diarrhoea [None]
  - Nausea [None]
  - Dyspnoea [None]
  - Chest discomfort [None]
  - Myalgia [None]

NARRATIVE: CASE EVENT DATE: 20210616
